FAERS Safety Report 5843736-8 (Version None)
Quarter: 2008Q3

REPORT INFORMATION
  Report Type: 
  Country: None (occurrence: None)
  Receive Date: 20080813
  Receipt Date: 20080612
  Transmission Date: 20090109
  Serious: Yes (Other)
  Sender: FDA-Public Use
  Company Number: US-BRISTOL-MYERS SQUIBB COMPANY-14202774

PATIENT
  Age: 83 Year
  Sex: Female
  Weight: 60 kg

DRUGS (6)
  1. IXEMPRA KIT [Suspect]
     Indication: BREAST CANCER METASTATIC
     Dosage: 1ST INFUSION ON 21APR08
     Route: 042
     Dates: start: 20080512, end: 20080512
  2. BENADRYL [Concomitant]
     Indication: PREMEDICATION
  3. DECADRON SRC [Concomitant]
     Indication: PREMEDICATION
  4. H1 ANTAGONIST [Concomitant]
     Indication: PREMEDICATION
  5. H2 ANTAGONIST [Concomitant]
     Indication: PREMEDICATION
  6. TYLENOL [Concomitant]
     Indication: PREMEDICATION

REACTIONS (2)
  - BACK PAIN [None]
  - PHARYNGEAL OEDEMA [None]
